FAERS Safety Report 4866091-9 (Version None)
Quarter: 2005Q4

REPORT INFORMATION
  Report Type: 
  Country: None (occurrence: None)
  Receive Date: 20051227
  Receipt Date: 20051215
  Transmission Date: 20060501
  Serious: Yes (Other)
  Sender: FDA-Public Use
  Company Number: DK-JNJFOC-20050806059

PATIENT
  Age: 50 Year
  Sex: Female
  Weight: 74 kg

DRUGS (12)
  1. REMICADE [Suspect]
     Route: 042
  2. REMICADE [Suspect]
     Indication: RHEUMATOID ARTHRITIS
     Dosage: 5MG/KG
     Route: 042
  3. METHOTREXATE [Concomitant]
     Indication: RHEUMATOID ARTHRITIS
     Route: 065
  4. PREDNISOLONE [Concomitant]
     Route: 065
  5. PREDNISOLONE [Concomitant]
     Indication: RHEUMATOID ARTHRITIS
     Route: 065
  6. FOSAMAX [Concomitant]
     Route: 065
  7. FOSAMAX [Concomitant]
     Indication: OSTEOPOROSIS PROPHYLAXIS
     Route: 065
  8. LANSOPRAZOLE [Concomitant]
     Indication: DYSPEPSIA
     Route: 065
  9. FOLIC ACID [Concomitant]
     Indication: VITAMIN SUPPLEMENTATION
     Route: 065
  10. UNIKALK [Concomitant]
     Route: 065
  11. UNIKALK [Concomitant]
     Route: 065
  12. UNIKALK [Concomitant]
     Route: 065

REACTIONS (2)
  - BLINDNESS [None]
  - OPTIC NEURITIS [None]
